FAERS Safety Report 8362115-5 (Version None)
Quarter: 2012Q2

REPORT INFORMATION
  Report Type: 
  Country: None (occurrence: None)
  Receive Date: 20120515
  Receipt Date: 20120510
  Transmission Date: 20120825
  Serious: Yes (Hospitalization, Congenital Anomaly, Other)
  Sender: FDA-Public Use
  Company Number: DE-ABBOTT-12P-062-0934850-00

PATIENT
  Sex: Female

DRUGS (1)
  1. VALPROIC ACID [Suspect]
     Indication: MATERNAL EXPOSURE TIMING UNSPECIFIED
     Route: 064

REACTIONS (6)
  - FOETAL EXPOSURE TIMING UNSPECIFIED [None]
  - FOETAL EXPOSURE DURING PREGNANCY [None]
  - MENINGOMYELOCELE [None]
  - ACOUSTIC STIMULATION TESTS ABNORMAL [None]
  - MICTURITION DISORDER [None]
  - NAEVUS FLAMMEUS [None]
